FAERS Safety Report 8766540 (Version 1)
Quarter: 2012Q4

REPORT INFORMATION
  Report Type: 
  Country: US (occurrence: US)
  Receive Date: 20120904
  Receipt Date: 20120904
  Transmission Date: 20130627
  Serious: Yes (Hospitalization, Other)
  Sender: FDA-Public Use
  Company Number: US-ASTRAZENECA-2012SE61225

PATIENT
  Age: 82 Year
  Sex: Female

DRUGS (6)
  1. BRILINTA [Suspect]
     Indication: ACUTE MYOCARDIAL INFARCTION
     Route: 048
  2. BRILINTA [Suspect]
     Indication: MYOCARDIAL INFARCTION
     Route: 048
  3. BRILINTA [Suspect]
     Indication: ACUTE MYOCARDIAL INFARCTION
     Route: 048
  4. BRILINTA [Suspect]
     Indication: MYOCARDIAL INFARCTION
     Route: 048
  5. BABY ASPIRIN [Suspect]
     Route: 065
  6. COUMADIN [Concomitant]
     Indication: CEREBROVASCULAR ACCIDENT PROPHYLAXIS

REACTIONS (7)
  - Ischaemic stroke [Unknown]
  - Renal failure [Unknown]
  - Cerebral haemorrhage [Unknown]
  - International normalised ratio increased [Unknown]
  - Diabetes mellitus [Unknown]
  - Blood cholesterol increased [Unknown]
  - Bradycardia [Unknown]
